FAERS Safety Report 5298027-3 (Version None)
Quarter: 2007Q2

REPORT INFORMATION
  Report Type: 
  Country: None (occurrence: None)
  Receive Date: 20070409
  Receipt Date: 20070326
  Transmission Date: 20071010
  Serious: Yes (Hospitalization, Other)
  Sender: FDA-Public Use
  Company Number: 2007SP003469

PATIENT
  Age: 65 Year
  Sex: Male
  Weight: 49 kg

DRUGS (4)
  1. TEMODAL [Suspect]
     Indication: CENTRAL NERVOUS SYSTEM LYMPHOMA
     Dosage: 200 MG; QD; PO
     Route: 048
     Dates: start: 20070210, end: 20070214
  2. NATULAN (PROCARBAZINE HYDROCHLORIDE) [Suspect]
     Indication: CENTRAL NERVOUS SYSTEM LYMPHOMA
     Dosage: 114 MG; PO
     Route: 048
     Dates: start: 20070210, end: 20070216
  3. METHOTREXATE (CON.) [Concomitant]
  4. METHYLPREDNISOLONE (CON.) [Concomitant]

REACTIONS (7)
  - BURNING SENSATION [None]
  - CYTOLYTIC HEPATITIS [None]
  - PETECHIAE [None]
  - RASH GENERALISED [None]
  - RASH PAPULAR [None]
  - TOXIC SKIN ERUPTION [None]
  - VASCULITIS [None]
